FAERS Safety Report 5164665-1 (Version None)
Quarter: 2006Q4

REPORT INFORMATION
  Report Type: 
  Country: None (occurrence: None)
  Receive Date: 20061205
  Receipt Date: 20061121
  Transmission Date: 20070319
  Serious: Yes (Hospitalization, Other)
  Sender: FDA-Public Use
  Company Number: US-ELI_LILLY_AND_COMPANY-US200611004603

PATIENT
  Age: 93 Year
  Sex: Female

DRUGS (3)
  1. FORTEO [Suspect]
     Indication: OSTEOPOROSIS
     Dosage: UNK, UNK
     Dates: start: 20050401, end: 20061001
  2. NEXIUM [Concomitant]
     Indication: STOMACH DISCOMFORT
     Dosage: UNK UNK, UNKNOWN
  3. RISPERIDONE [Concomitant]
     Dosage: UNK UNK, UNKNOWN

REACTIONS (3)
  - CARDIAC VALVE DISEASE [None]
  - DYSPNOEA [None]
  - PRURITUS [None]
